FAERS Safety Report 4735416-7 (Version None)
Quarter: 2005Q3

REPORT INFORMATION
  Report Type: 
  Country: None (occurrence: None)
  Receive Date: 20050801
  Receipt Date: 20050801
  Transmission Date: 20060218
  Serious: Yes (Other)
  Sender: FDA-Public Use
  Company Number: None

PATIENT
  Age: 56 Year
  Sex: Female

DRUGS (3)
  1. OMNIPAQUE 350 [Suspect]
     Indication: DIZZINESS
     Dosage: 120 CC, IV, ONCE
     Route: 042
     Dates: start: 20050506
  2. OMNIPAQUE 350 [Suspect]
     Indication: HEADACHE
     Dosage: 120 CC, IV, ONCE
     Route: 042
     Dates: start: 20050506
  3. OMNIPAQUE 350 [Suspect]
     Indication: HYPOACUSIS
     Dosage: 120 CC, IV, ONCE
     Route: 042
     Dates: start: 20050506

REACTIONS (9)
  - BLOOD PRESSURE SYSTOLIC INCREASED [None]
  - CHEST PAIN [None]
  - CONTRAST MEDIA REACTION [None]
  - DYSPNOEA [None]
  - FEELING ABNORMAL [None]
  - HEART RATE INCREASED [None]
  - PRURITUS [None]
  - SINUS TACHYCARDIA [None]
  - WHEEZING [None]
